FAERS Safety Report 8293499-4 (Version None)
Quarter: 2012Q2

REPORT INFORMATION
  Report Type: 
  Country: None (occurrence: None)
  Receive Date: 20120417
  Receipt Date: 20120413
  Transmission Date: 20120825
  Serious: Yes (Hospitalization)
  Sender: FDA-Public Use
  Company Number: US-AMGEN-USASP2012023706

PATIENT
  Age: 45 Year
  Sex: Female
  Weight: 63.2 kg

DRUGS (4)
  1. PEGFILGRASTIM [Suspect]
     Indication: BREAST CANCER
     Dosage: 6 MG, ON DAY 2
     Route: 058
     Dates: start: 20090620
  2. DOXORUBICIN HCL [Suspect]
     Indication: BREAST CANCER
     Dosage: 60 MG/M2, Q2WK
     Route: 042
     Dates: start: 20090619
  3. CYCLOPHOSPHAMIDE [Suspect]
     Indication: BREAST CANCER
     Dosage: 600 MG/M2, Q2WK
     Route: 042
     Dates: start: 20090619
  4. BEVACIZUMAB [Suspect]
     Indication: BREAST CANCER
     Dosage: 10 MG/KG, Q2WK
     Route: 042
     Dates: start: 20090619

REACTIONS (1)
  - FEBRILE NEUTROPENIA [None]
